FAERS Safety Report 6888030-1 (Version None)
Quarter: 2010Q3

REPORT INFORMATION
  Report Type: 
  Country: None (occurrence: None)
  Receive Date: 20100727
  Receipt Date: 20100719
  Transmission Date: 20110219
  Serious: Yes (Hospitalization)
  Sender: FDA-Public Use
  Company Number: 2010SP039685

PATIENT
  Age: 28 Year
  Sex: Male

DRUGS (9)
  1. MIRTAZAPINE [Suspect]
     Indication: DEPRESSION
     Dosage: 15 MG;QD;PO
     Route: 048
     Dates: start: 20100526, end: 20100616
  2. LYRICA [Concomitant]
  3. LOXAPAC [Concomitant]
  4. ACETAMINOPHEN [Concomitant]
  5. TOPALGIC [Concomitant]
  6. XYZAL [Concomitant]
  7. SERESTA [Concomitant]
  8. ZOLPIDEM [Concomitant]
  9. RISPERDAL [Concomitant]

REACTIONS (3)
  - ANXIETY [None]
  - CYTOLYTIC HEPATITIS [None]
  - OEDEMA PERIPHERAL [None]
